FAERS Safety Report 21882398 (Version 2)
Quarter: 2023Q1

REPORT INFORMATION
  Report Type: Report from Study
  Country: US (occurrence: US)
  Receive Date: 20230119
  Receipt Date: 20230120
  Transmission Date: 20230418
  Serious: No
  Sender: FDA-Public Use
  Company Number: US-Accord-258308

PATIENT
  Age: 25 Year
  Sex: Female
  Weight: 104.3 kg

DRUGS (2)
  1. CLOZAPINE [Suspect]
     Active Substance: CLOZAPINE
     Indication: Schizoaffective disorder
     Dosage: NIGHTLY,DOSE INCREASED TO 12.5 MG NIGHTLY
     Route: 048
     Dates: start: 20220316, end: 20220317
  2. MELATONIN [Concomitant]
     Active Substance: MELATONIN
     Indication: Sleep disorder
     Dosage: 2 DOSES 16-MAR-2022 AND 23-MAR-2022
     Route: 048
     Dates: start: 20220316, end: 20220325

REACTIONS (3)
  - Neutrophilia [Unknown]
  - Lethargy [Recovered/Resolved]
  - Confusional state [Recovered/Resolved]

NARRATIVE: CASE EVENT DATE: 20220316
